FAERS Safety Report 4551593-5 (Version None)
Quarter: 2005Q1

REPORT INFORMATION
  Report Type: 
  Country: None (occurrence: None)
  Receive Date: 20050107
  Receipt Date: 20041129
  Transmission Date: 20050727
  Serious: Yes (Hospitalization)
  Sender: FDA-Public Use
  Company Number: USA-2004-0016726

PATIENT
  Age: 58 Year
  Sex: Female

DRUGS (8)
  1. OXY CR TAB(OXY CR TAB) (OXYCODONE HYDROCHLORIDE) CR TABLET [Suspect]
     Indication: CANCER PAIN
     Dosage: 80 MG, DAILY; 160 MG, DAILY
     Dates: start: 20040831, end: 20040903
  2. OXY CR TAB(OXY CR TAB) (OXYCODONE HYDROCHLORIDE) CR TABLET [Suspect]
     Indication: CANCER PAIN
     Dosage: 80 MG, DAILY; 160 MG, DAILY
     Dates: start: 20040903, end: 20040904
  3. OXYCODONE HCL [Suspect]
     Indication: PAIN
     Dosage: 40 MG, PRN
     Dates: start: 20040831, end: 20040903
  4. TAMOXIFEN (TAMOXIFEN) [Concomitant]
  5. CELEBREX [Concomitant]
  6. ACETAMINOPHEN [Concomitant]
  7. ORDINE (MORPHINE HYDROCHLORIDE) [Concomitant]
  8. AREDIA [Concomitant]

REACTIONS (3)
  - ORAL INTAKE REDUCED [None]
  - PULMONARY EMBOLISM [None]
  - THERAPY NON-RESPONDER [None]
